FAERS Safety Report 20810124 (Version 1)
Quarter: 2022Q2

REPORT INFORMATION
  Report Type: Spontaneous
  Country: US (occurrence: US)
  Receive Date: 20220510
  Receipt Date: 20220510
  Transmission Date: 20220721
  Serious: No
  Sender: FDA-Public Use
  Company Number: US-OYSTER POINT PHARMA, INC.-2022OYS00093

PATIENT
  Age: 84 Year
  Sex: Female
  Weight: 78.912 kg

DRUGS (5)
  1. TYRVAYA [Suspect]
     Active Substance: VARENICLINE TARTRATE
     Indication: Dry eye
     Dosage: 1 SPRAY IN EACH NOSTRIL, 2X/DAY
     Route: 045
     Dates: start: 20220117
  2. RESTASIS [Concomitant]
     Active Substance: CYCLOSPORINE
  3. XIIDRA [Concomitant]
     Active Substance: LIFITEGRAST
  4. BOTOX [Concomitant]
     Active Substance: ONABOTULINUMTOXINA
  5. UNSPECIFIED ^ROUTINE^ MEDICATION [Concomitant]

REACTIONS (4)
  - Rhinorrhoea [Not Recovered/Not Resolved]
  - Therapeutic response unexpected [Not Recovered/Not Resolved]
  - Product delivery mechanism issue [Not Recovered/Not Resolved]
  - Sneezing [Recovering/Resolving]

NARRATIVE: CASE EVENT DATE: 20220101
